FAERS Safety Report 6049256-2 (Version None)
Quarter: 2009Q1

REPORT INFORMATION
  Report Type: 
  Country: None (occurrence: None)
  Receive Date: 20090123
  Receipt Date: 20090116
  Transmission Date: 20090719
  Serious: Yes (Hospitalization)
  Sender: FDA-Public Use
  Company Number: US-GENENTECH-275756

PATIENT
  Sex: Female
  Weight: 65.76 kg

DRUGS (8)
  1. AVASTIN [Suspect]
     Indication: COLORECTAL CANCER METASTATIC
     Dosage: 660 MG, Q2W
  2. PROCRIT [Suspect]
     Indication: ANAEMIA
     Dosage: 4000 IU, UNK
     Dates: start: 20070411, end: 20070411
  3. PROCRIT [Suspect]
     Indication: COLORECTAL CANCER METASTATIC
  4. FLUOROURACIL [Concomitant]
     Indication: COLORECTAL CANCER METASTATIC
     Dosage: 700 MG, 1/WEEK
  5. IRINOTECAN HCL [Concomitant]
     Indication: COLORECTAL CANCER METASTATIC
     Dosage: 176 MG, 1/WEEK
  6. LEUCOVORIN CALCIUM [Concomitant]
     Indication: COLORECTAL CANCER METASTATIC
     Dosage: 200 MG, 1/WEEK
  7. LORTAB [Concomitant]
     Indication: DRUG USE FOR UNKNOWN INDICATION
  8. ANTIPERPERTENSI [Suspect]

REACTIONS (3)
  - DEHYDRATION [None]
  - HYPERTENSION [None]
  - VERTIGO [None]
